FAERS Safety Report 5520824-7 (Version None)
Quarter: 2007Q4

REPORT INFORMATION
  Report Type: 
  Country: None (occurrence: None)
  Receive Date: 20071119
  Receipt Date: 20071108
  Transmission Date: 20080405
  Serious: Yes (Death, Life-Threatening, Hospitalization)
  Sender: FDA-Public Use
  Company Number: US-AMGEN-US247528

PATIENT
  Sex: Female
  Weight: 69.1 kg

DRUGS (33)
  1. VECTIBIX [Suspect]
     Indication: COLORECTAL CANCER
     Route: 042
     Dates: start: 20070529, end: 20070814
  2. POTASSIUM CHLORIDE [Concomitant]
     Route: 065
  3. NORVASC [Concomitant]
     Route: 065
  4. REGLAN [Concomitant]
     Route: 065
  5. PREDNISONE TAB [Concomitant]
     Route: 065
  6. PLAQUENIL [Concomitant]
     Route: 065
  7. SYNTHROID [Concomitant]
     Route: 065
  8. OXYCODONE HCL [Concomitant]
     Route: 065
  9. NEXIUM [Concomitant]
     Route: 065
  10. CELEBREX [Concomitant]
     Route: 065
  11. REQUIP [Concomitant]
     Route: 065
  12. PULMICORT [Concomitant]
     Route: 065
  13. ZOFRAN [Concomitant]
     Route: 065
  14. PHENERGAN HCL [Concomitant]
     Route: 065
  15. DECADRON [Concomitant]
     Route: 042
  16. CAMPTOSAR [Concomitant]
     Route: 065
     Dates: start: 20060605, end: 20070814
  17. NEURONTIN [Concomitant]
     Route: 065
  18. COMBIVENT [Concomitant]
     Route: 065
  19. DIGOXIN [Concomitant]
     Route: 065
  20. LOVENOX [Concomitant]
     Route: 065
  21. XOPENEX [Concomitant]
     Route: 065
  22. PROTONIX [Concomitant]
     Route: 065
  23. IMIPENEM [Concomitant]
     Route: 042
     Dates: start: 20070831
  24. LASIX [Concomitant]
     Route: 065
  25. ROXICODONE [Concomitant]
     Route: 065
  26. ATIVAN [Concomitant]
     Route: 065
  27. METRONIDAZOLE [Concomitant]
     Route: 065
  28. XANAX [Concomitant]
     Route: 065
  29. VITAMIN CAP [Concomitant]
     Route: 065
  30. LOMOTIL [Concomitant]
     Route: 065
  31. IMODIUM [Concomitant]
     Route: 065
  32. BENADRYL [Concomitant]
     Route: 065
  33. DIPRIVAN [Concomitant]
     Route: 065

REACTIONS (9)
  - ANAEMIA [None]
  - ATRIAL FIBRILLATION [None]
  - HYPOTENSION [None]
  - LUNG INFILTRATION [None]
  - PNEUMONIA [None]
  - PYREXIA [None]
  - RESPIRATORY FAILURE [None]
  - SEPSIS [None]
  - URINARY TRACT INFECTION [None]
